FAERS Safety Report 22256503 (Version 8)
Quarter: 2023Q4

REPORT INFORMATION
  Report Type: Report from Study
  Country: CA (occurrence: CA)
  Receive Date: 20230426
  Receipt Date: 20231025
  Transmission Date: 20240110
  Serious: Yes (Hospitalization)
  Sender: FDA-Public Use
  Company Number: CA-AKCEA THERAPEUTICS, INC.-2021IS001265

PATIENT

DRUGS (1)
  1. TEGSEDI [Suspect]
     Active Substance: INOTERSEN SODIUM
     Indication: Hereditary neuropathic amyloidosis
     Dosage: 284 MG, QW (PRE-FILLED SYRINGE)
     Route: 058
     Dates: start: 20210323

REACTIONS (27)
  - Synovial cyst [Recovering/Resolving]
  - Pain [Not Recovered/Not Resolved]
  - Red cell distribution width increased [Not Recovered/Not Resolved]
  - Neutrophil count decreased [Recovered/Resolved]
  - Blood creatinine decreased [Not Recovered/Not Resolved]
  - Haemoglobin decreased [Not Recovered/Not Resolved]
  - Monocyte count decreased [Recovered/Resolved]
  - Haematocrit decreased [Recovered/Resolved]
  - Creatinine urine abnormal [Recovered/Resolved]
  - Red blood cell count decreased [Recovered/Resolved]
  - Dysphonia [Not Recovered/Not Resolved]
  - Mean cell haemoglobin concentration decreased [Recovered/Resolved]
  - Lymphocyte count increased [Recovered/Resolved]
  - Basophil percentage decreased [Unknown]
  - Red blood cell rouleaux formation present [Unknown]
  - Urine protein/creatinine ratio increased [Not Recovered/Not Resolved]
  - Protein urine present [Unknown]
  - White blood cell count decreased [Not Recovered/Not Resolved]
  - Red blood cell burr cells present [Unknown]
  - Mean platelet volume increased [Recovered/Resolved]
  - Aspartate aminotransferase increased [Recovered/Resolved]
  - Eosinophil count decreased [Recovered/Resolved]
  - Blood glucose increased [Not Recovered/Not Resolved]
  - Blood thyroid stimulating hormone increased [Not Recovered/Not Resolved]
  - Blood bilirubin unconjugated decreased [Recovered/Resolved]
  - Arthropathy [Recovering/Resolving]
  - Fall [Not Recovered/Not Resolved]

NARRATIVE: CASE EVENT DATE: 20210330
